FAERS Safety Report 17891126 (Version 5)
Quarter: 2020Q3

REPORT INFORMATION
  Report Type: Spontaneous
  Country: US (occurrence: US)
  Receive Date: 20200612
  Receipt Date: 20200808
  Transmission Date: 20201103
  Serious: Yes (Life-Threatening)
  Sender: FDA-Public Use
  Company Number: US-009507513-2006USA003933

PATIENT
  Age: 72 Year
  Sex: Male

DRUGS (5)
  1. PROAIR HFA [Suspect]
     Active Substance: ALBUTEROL SULFATE
     Dosage: UNK
     Dates: start: 202007
  2. PROVENTIL [Suspect]
     Active Substance: ALBUTEROL
     Dosage: INHALE 2 PUFFS BY MOUTH EVERY 4 HOURS
  3. PROVENTIL [Suspect]
     Active Substance: ALBUTEROL
     Dosage: 2?4 PUFFS AS NEEDED
     Dates: start: 20200615
  4. PROVENTIL [Suspect]
     Active Substance: ALBUTEROL
     Dosage: UNK
     Dates: start: 1990
  5. PROVENTIL [Suspect]
     Active Substance: ALBUTEROL
     Dosage: 2?3 PUFFS WHEN NEEDED 3?4 TIMES PER DAY
     Dates: start: 202007

REACTIONS (8)
  - Poor quality device used [Unknown]
  - Poor quality device used [Unknown]
  - Oesophageal pain [Unknown]
  - Product quality issue [Unknown]
  - Product quality issue [Unknown]
  - Poor quality device used [Unknown]
  - Product use issue [Unknown]
  - Product quality issue [Unknown]

NARRATIVE: CASE EVENT DATE: 20200607
